FAERS Safety Report 16195004 (Version 1)
Quarter: 2019Q2

REPORT INFORMATION
  Report Type: Spontaneous
  Country: FR (occurrence: FR)
  Receive Date: 20190415
  Receipt Date: 20190415
  Transmission Date: 20190711
  Serious: Yes (Death, Life-Threatening, Hospitalization, Other)
  Sender: FDA-Public Use
  Company Number: FR-BRISTOL-MYERS SQUIBB COMPANY-BMS-2019-035489

PATIENT
  Age: 81 Year
  Sex: Male
  Weight: 46 kg

DRUGS (1)
  1. OPDIVO [Suspect]
     Active Substance: NIVOLUMAB
     Indication: LUNG ADENOCARCINOMA
     Dosage: 150 MILLIGRAM, DRUG INTERVAL 2 WEEKS
     Route: 041
     Dates: start: 20180309, end: 20190109

REACTIONS (2)
  - Acute respiratory failure [Fatal]
  - Bronchitis [Unknown]

NARRATIVE: CASE EVENT DATE: 20181211
